FAERS Safety Report 9145788 (Version 1)
Quarter: 2013Q1

REPORT INFORMATION
  Report Type: Spontaneous
  Country: US (occurrence: None)
  Receive Date: 20130222
  Receipt Date: 20130222
  Transmission Date: 20140127
  Serious: Yes (Death)
  Sender: FDA-Public Use
  Company Number: 2013-00391

PATIENT
  Age: 79 Year
  Sex: Female

DRUGS (4)
  1. LISINOPRIL (UNKNOWN) (LISINOPRIL) [Suspect]
  2. CITALOPRAM (UNKNOWN) (CITALOPRAM) [Suspect]
  3. PROPRANOLOL [Suspect]
  4. ETHANOL [Suspect]

REACTIONS (1)
  - Completed suicide [None]
